FAERS Safety Report 7506419 (Version 3)
Quarter: 2013Q4

REPORT INFORMATION
  Report Type: Spontaneous
  Country: US (occurrence: US)
  Receive Date: 20100727
  Receipt Date: 20131011
  Transmission Date: 20140711
  Serious: Yes (Hospitalization)
  Sender: FDA-Public Use
  Company Number: US-BIOGENIDEC-2010BI024173

PATIENT
  Age: 62 Year
  Sex: Female

DRUGS (2)
  1. AVONEX [Suspect]
     Indication: MULTIPLE SCLEROSIS
     Route: 030
     Dates: start: 19961006, end: 20031001
  2. AVONEX [Suspect]
     Indication: MULTIPLE SCLEROSIS
     Route: 030
     Dates: start: 20060606

REACTIONS (6)
  - Knee arthroplasty [Recovered/Resolved]
  - Anger [Not Recovered/Not Resolved]
  - Blindness unilateral [Recovered/Resolved]
  - Exostosis [Recovered/Resolved]
  - Emotional disorder [Not Recovered/Not Resolved]
  - Depressed mood [Not Recovered/Not Resolved]
